FAERS Safety Report 6263909-2 (Version None)
Quarter: 2009Q3

REPORT INFORMATION
  Report Type: 
  Country: None (occurrence: None)
  Receive Date: 20090710
  Receipt Date: 20090629
  Transmission Date: 20100115
  Serious: No
  Sender: FDA-Public Use
  Company Number: US-BAYER-200925065NA

PATIENT
  Age: 32 Year
  Sex: Female
  Weight: 95 kg

DRUGS (1)
  1. MIRENA [Suspect]
     Indication: CONTRACEPTION
     Dosage: CONTINUOUS
     Route: 015
     Dates: start: 20081101, end: 20090625

REACTIONS (5)
  - ABDOMINAL PAIN LOWER [None]
  - ANAEMIA [None]
  - DIZZINESS [None]
  - INTRA-UTERINE CONTRACEPTIVE DEVICE EXPELLED [None]
  - MENSTRUAL DISORDER [None]
